FAERS Safety Report 6622801-1 (Version None)
Quarter: 2010Q1

REPORT INFORMATION
  Report Type: 
  Country: None (occurrence: None)
  Receive Date: 20100310
  Receipt Date: 20100225
  Transmission Date: 20100710
  Serious: Yes (Hospitalization)
  Sender: FDA-Public Use
  Company Number: DK-ELI_LILLY_AND_COMPANY-DK201002001651

PATIENT
  Sex: Female
  Weight: 52.6 kg

DRUGS (8)
  1. PEMETREXED [Suspect]
     Indication: NON-SMALL CELL LUNG CANCER
     Dosage: 500 MG/M2, DAY 1 EVERY 21 DAYS
     Route: 042
     Dates: start: 20091106
  2. CISPLATIN [Suspect]
     Indication: NON-SMALL CELL LUNG CANCER
     Dosage: 75 MG/M2, DAY 1 EVERY 21 DAYS
     Route: 042
     Dates: start: 20091106
  3. BEVACIZUMAB [Suspect]
     Indication: NON-SMALL CELL LUNG CANCER
     Dosage: 7.5 MG/KG, DAY 1 EVERY 21 DAYS
     Dates: start: 20091106
  4. FOLIC ACID [Concomitant]
     Indication: PROPHYLAXIS
  5. VITAMIN B-12 [Concomitant]
     Indication: PROPHYLAXIS
  6. PREDNISOLON [Concomitant]
     Indication: PROPHYLAXIS
  7. MANDOLGIN [Concomitant]
     Indication: PAIN
     Dates: start: 20091016
  8. PINEX [Concomitant]
     Indication: PAIN
     Dates: start: 20100203

REACTIONS (4)
  - DEHYDRATION [None]
  - HEART RATE INCREASED [None]
  - HYPERKALAEMIA [None]
  - NAUSEA [None]
